FAERS Safety Report 8191765-4 (Version None)
Quarter: 2012Q1

REPORT INFORMATION
  Report Type: 
  Country: None (occurrence: None)
  Receive Date: 20120307
  Receipt Date: 20120222
  Transmission Date: 20120608
  Serious: Yes (Disabling, Other)
  Sender: FDA-Public Use
  Company Number: US-BAYER-2012-017944

PATIENT
  Age: 56 Year
  Sex: Female
  Weight: 71 kg

DRUGS (8)
  1. NEXIUM [Suspect]
     Indication: GASTROOESOPHAGEAL REFLUX DISEASE
     Dosage: DAILY
  2. NORTRIPTYLINE HCL [Suspect]
     Indication: MUSCLE SPASMS
     Dosage: 25 MG, UNK
  3. ASPIRIN [Suspect]
     Indication: CARDIAC DISORDER
     Dosage: UNK
  4. LYRICA [Suspect]
     Dosage: UNK, QID
  5. ASPIRIN [Suspect]
     Dosage: 81 MG, QD
  6. NORTRIPTYLINE HCL [Suspect]
     Indication: PAIN IN EXTREMITY
  7. LYRICA [Suspect]
     Indication: NEUROPATHY PERIPHERAL
     Dosage: 25 MG, TID
  8. NORTRIPTYLINE HCL [Suspect]
     Indication: MUSCULOSKELETAL STIFFNESS

REACTIONS (16)
  - FALL [None]
  - DISORIENTATION [None]
  - GASTROOESOPHAGEAL REFLUX DISEASE [None]
  - MUSCLE SPASMS [None]
  - PAIN IN EXTREMITY [None]
  - ARTHRITIS [None]
  - UNEVALUABLE EVENT [None]
  - MUSCULOSKELETAL STIFFNESS [None]
  - GAIT DISTURBANCE [None]
  - HYPOAESTHESIA [None]
  - DIZZINESS [None]
  - SLEEP DISORDER [None]
  - HYPOAESTHESIA ORAL [None]
  - GOUT [None]
  - SOMNOLENCE [None]
  - ABDOMINAL DISCOMFORT [None]
